FAERS Safety Report 8800912 (Version 2)
Quarter: 2015Q1

REPORT INFORMATION
  Report Type: Report from Study
  Country: US (occurrence: US)
  Receive Date: 20120920
  Receipt Date: 20150304
  Transmission Date: 20150721
  Serious: Yes (Death)
  Sender: FDA-Public Use
  Company Number: US-ROCHE-1102828

PATIENT
  Age: 57 Year
  Sex: Male

DRUGS (22)
  1. AVASTIN [Suspect]
     Active Substance: BEVACIZUMAB
     Indication: BRAIN NEOPLASM MALIGNANT
     Route: 042
     Dates: start: 20080801
  2. GEMZAR [Concomitant]
     Active Substance: GEMCITABINE HYDROCHLORIDE
     Route: 065
  3. TARCEVA [Suspect]
     Active Substance: ERLOTINIB HYDROCHLORIDE
     Indication: LUNG NEOPLASM MALIGNANT
     Route: 048
  4. DECADRON [Concomitant]
     Active Substance: DEXAMETHASONE
     Route: 048
  5. ALOXI [Concomitant]
     Active Substance: PALONOSETRON HYDROCHLORIDE
     Route: 065
  6. ALIMTA [Concomitant]
     Active Substance: PEMETREXED DISODIUM
     Route: 065
     Dates: start: 20080801
  7. ALIMTA [Concomitant]
     Active Substance: PEMETREXED DISODIUM
     Route: 065
  8. VITAMIN B12 [Concomitant]
     Active Substance: CYANOCOBALAMIN
     Route: 065
  9. CARBOPLATIN. [Concomitant]
     Active Substance: CARBOPLATIN
  10. PROCRIT [Concomitant]
     Active Substance: ERYTHROPOIETIN
     Route: 065
  11. ALIMTA [Concomitant]
     Active Substance: PEMETREXED DISODIUM
     Route: 065
  12. ALIMTA [Concomitant]
     Active Substance: PEMETREXED DISODIUM
     Route: 065
  13. TAXOL [Concomitant]
     Active Substance: PACLITAXEL
  14. DURAGESIC [Concomitant]
     Active Substance: FENTANYL
     Route: 065
  15. DOXYCYCLINE. [Concomitant]
     Active Substance: DOXYCYCLINE
  16. ALIMTA [Concomitant]
     Active Substance: PEMETREXED DISODIUM
     Route: 065
  17. GEMZAR [Concomitant]
     Active Substance: GEMCITABINE HYDROCHLORIDE
     Route: 065
     Dates: start: 20080801
  18. GEMZAR [Concomitant]
     Active Substance: GEMCITABINE HYDROCHLORIDE
     Route: 065
  19. GEMZAR [Concomitant]
     Active Substance: GEMCITABINE HYDROCHLORIDE
     Route: 065
  20. GEMZAR [Concomitant]
     Active Substance: GEMCITABINE HYDROCHLORIDE
     Route: 065
  21. AVASTIN [Suspect]
     Active Substance: BEVACIZUMAB
     Indication: LUNG NEOPLASM MALIGNANT
     Route: 042
  22. LORTAB (UNITED STATES) [Concomitant]
     Route: 065

REACTIONS (12)
  - Rash [Unknown]
  - Abdominal pain [Unknown]
  - Fatigue [Unknown]
  - Disease progression [Unknown]
  - Pneumonitis [Unknown]
  - Feeling abnormal [Unknown]
  - Constipation [Unknown]
  - Lethargy [Unknown]
  - Weight decreased [Unknown]
  - Death [Fatal]
  - Nausea [Unknown]
  - Diarrhoea [Unknown]

NARRATIVE: CASE EVENT DATE: 20090131
